FAERS Safety Report 4366218-1 (Version None)
Quarter: 2004Q2

REPORT INFORMATION
  Report Type: 
  Country: None (occurrence: None)
  Receive Date: 20040527
  Receipt Date: 20040326
  Transmission Date: 20050107
  Serious: Yes (Hospitalization)
  Sender: FDA-Public Use
  Company Number: PR-BRISTOL-MYERS SQUIBB COMPANY-12545448

PATIENT
  Age: 37 Year
  Sex: Female

DRUGS (2)
  1. DEFINITY [Suspect]
     Dates: start: 20040326
  2. PENICILLIN [Concomitant]
     Dosage: ROUTE: INJECTION
     Dates: start: 20040326

REACTIONS (3)
  - ABDOMINAL DISCOMFORT [None]
  - MALAISE [None]
  - VOMITING [None]
